FAERS Safety Report 24587601 (Version 3)
Quarter: 2025Q3

REPORT INFORMATION
  Report Type: Report from Study
  Country: TW (occurrence: TW)
  Receive Date: 20241107
  Receipt Date: 20250803
  Transmission Date: 20251021
  Serious: Yes (Other)
  Sender: ALEXION PHARMACEUTICALS
  Company Number: TW-AstraZeneca-CH-00729471A

PATIENT
  Age: 73 Year
  Sex: Male

DRUGS (2)
  1. DURVALUMAB [Suspect]
     Active Substance: DURVALUMAB
     Indication: Small cell lung cancer
     Dosage: ,FREQUENCY:EVERY 8 WEEKS
     Dates: start: 20221103, end: 20240912
  2. DURVALUMAB [Suspect]
     Active Substance: DURVALUMAB
     Dosage: ,FREQUENCY:EVERY 4 WEEKS
     Dates: start: 20230817

REACTIONS (1)
  - Metastases to meninges [Not Recovered/Not Resolved]

NARRATIVE: CASE EVENT DATE: 20240927
